FAERS Safety Report 5207456-5 (Version None)
Quarter: 2006Q4

REPORT INFORMATION
  Report Type: 
  Country: None (occurrence: None)
  Receive Date: 20061027
  Receipt Date: 20060321
  Transmission Date: 20070319
  Serious: Yes (Hospitalization, Other)
  Sender: FDA-Public Use
  Company Number: HQWYE423121MAR06

PATIENT
  Age: 61 Year
  Sex: Female
  Weight: 61.29 kg

DRUGS (3)
  1. PREMARIN [Suspect]
  2. CYCRIN [Suspect]
  3. ESTRADERM [Suspect]

REACTIONS (1)
  - BREAST CANCER [None]
